FAERS Safety Report 13330929 (Version 2)
Quarter: 2017Q2

REPORT INFORMATION
  Report Type: Report from Study
  Country: US (occurrence: US)
  Receive Date: 20170314
  Receipt Date: 20170510
  Transmission Date: 20170830
  Serious: Yes (Hospitalization, Other)
  Sender: FDA-Public Use
  Company Number: US-ALEXION PHARMACEUTICALS INC.-A201702343

PATIENT
  Sex: Female

DRUGS (1)
  1. SOLIRIS [Suspect]
     Active Substance: ECULIZUMAB
     Indication: PAROXYSMAL NOCTURNAL HAEMOGLOBINURIA
     Route: 042

REACTIONS (8)
  - Herpes dermatitis [Unknown]
  - Fatigue [Unknown]
  - Cellulitis [Unknown]
  - Aplastic anaemia [Unknown]
  - Genital herpes [Unknown]
  - Breast cellulitis [Unknown]
  - Musculoskeletal pain [Unknown]
  - Asthenia [Unknown]
